FAERS Safety Report 9792021 (Version 1)
Quarter: 2014Q1

REPORT INFORMATION
  Report Type: Spontaneous
  Country: IT (occurrence: IT)
  Receive Date: 20140102
  Receipt Date: 20140102
  Transmission Date: 20141002
  Serious: Yes (Hospitalization, Other)
  Sender: FDA-Public Use
  Company Number: IT-UCBSA-107561

PATIENT
  Age: 57 Year
  Sex: Female

DRUGS (5)
  1. LEVETIRACETAM [Suspect]
     Dosage: 3000MG/DAY
  2. VALPROATE [Suspect]
     Dosage: 2000MG/DAY
  3. LAMOTRIGINE [Concomitant]
     Dosage: 300MG/DAY
  4. TOPIRAMATE [Concomitant]
     Dosage: 300MG/DAY
  5. PHENOBARBITAL [Concomitant]
     Dosage: 100MG/DAY

REACTIONS (1)
  - Status epilepticus [Recovered/Resolved]
